FAERS Safety Report 25519010 (Version 2)
Quarter: 2025Q3

REPORT INFORMATION
  Report Type: Spontaneous
  Country: US (occurrence: US)
  Receive Date: 20250704
  Receipt Date: 20250804
  Transmission Date: 20251020
  Serious: No
  Sender: ROCHE
  Company Number: US-ROCHE-10000324251

PATIENT
  Age: 45 Year
  Sex: Male
  Weight: 123.38 kg

DRUGS (3)
  1. XOLAIR PFS [Suspect]
     Active Substance: OMALIZUMAB
     Indication: Idiopathic urticaria
     Dosage: 300MG IN THE FORM OF (2) 150MG PFS ONCE PER MONTH
     Route: 058
     Dates: start: 2017
  2. XOLAIR PFS [Suspect]
     Active Substance: OMALIZUMAB
     Indication: Urticaria
     Dosage: 300MG IN THE FORM OF (2) 150MG PFS ONCE PER MONTH
     Route: 058
     Dates: start: 202301
  3. EPINEPHRINE [Concomitant]
     Active Substance: EPINEPHRINE

REACTIONS (6)
  - Incorrect dose administered [Unknown]
  - Device issue [Unknown]
  - Syringe issue [Unknown]
  - Diabetes mellitus [Unknown]
  - Wrong technique in device usage process [Unknown]
  - Accidental exposure to product [Unknown]

NARRATIVE: CASE EVENT DATE: 20200101
